FAERS Safety Report 6200011-X (Version None)
Quarter: 2009Q2

REPORT INFORMATION
  Report Type: 
  Country: None (occurrence: None)
  Receive Date: 20090522
  Receipt Date: 20090518
  Transmission Date: 20091009
  Serious: Yes (Life-Threatening, Hospitalization)
  Sender: FDA-Public Use
  Company Number: US-MERCK-0905USA02242

PATIENT
  Age: 65 Year
  Sex: Male

DRUGS (1)
  1. JANUVIA [Suspect]
     Route: 048
     Dates: start: 20090201

REACTIONS (3)
  - BLOOD GLUCOSE INCREASED [None]
  - RENAL FAILURE ACUTE [None]
  - TUBULOINTERSTITIAL NEPHRITIS [None]
